FAERS Safety Report 9861609 (Version 1)
Quarter: 2014Q1

REPORT INFORMATION
  Report Type: Spontaneous
  Country: US (occurrence: US)
  Receive Date: 20140203
  Receipt Date: 20140203
  Transmission Date: 20141002
  Serious: Yes (Hospitalization)
  Sender: FDA-Public Use
  Company Number: US-BIOGENIDEC-2014BI008797

PATIENT
  Age: 51 Year
  Sex: Male

DRUGS (2)
  1. AVONEX [Suspect]
     Indication: MULTIPLE SCLEROSIS
     Route: 030
     Dates: start: 20130831, end: 20130921
  2. AVONEX [Suspect]
     Indication: MULTIPLE SCLEROSIS
     Route: 030
     Dates: start: 20130928

REACTIONS (7)
  - Fall [Recovered/Resolved]
  - Feeling of body temperature change [Recovered/Resolved]
  - Loss of control of legs [Recovered/Resolved]
  - Vertigo [Not Recovered/Not Resolved]
  - Motion sickness [Not Recovered/Not Resolved]
  - Illusion [Not Recovered/Not Resolved]
  - Balance disorder [Not Recovered/Not Resolved]
